FAERS Safety Report 8836533 (Version 4)
Quarter: 2013Q1

REPORT INFORMATION
  Report Type: Spontaneous
  Country: US (occurrence: None)
  Receive Date: 20121009
  Receipt Date: 20130123
  Transmission Date: 20140127
  Serious: Yes (Death, Life-Threatening, Hospitalization)
  Sender: FDA-Public Use
  Company Number: 2012SGN00438

PATIENT
  Age: 59 Year
  Sex: Female

DRUGS (11)
  1. BRENTUXIMAB VEDOTIN [Suspect]
     Indication: ACUTE GRAFT VERSUS HOST DISEASE
     Dosage: 1.8 MG/ KG, Q21D, INTRAVENOUS
     Route: 042
     Dates: start: 20120905
  2. BECLOMETASONE DIPROPIONATE [Concomitant]
  3. FLUCONAZOLE (FLUCONAZOLE) [Concomitant]
  4. GLUCOPHAGE (METFORMIN HYDROCHLORIDE) [Concomitant]
  5. MARINOL [Concomitant]
  6. OXYCODONE (OXYCODONE) [Concomitant]
  7. PENTAMIDINE (PENTAMIDINE) [Concomitant]
  8. PREDNISONE (PREDNISONE ACETATE) [Concomitant]
  9. TACROLIMUS (TACROLIMUS) [Concomitant]
  10. VALCYTE (VALGANICILOVIR HYDROCHLORIDE) [Concomitant]
  11. ZOFRAN (ONDANSETRON) [Concomitant]

REACTIONS (21)
  - Malaise [None]
  - Hypophagia [None]
  - Unresponsive to stimuli [None]
  - Febrile neutropenia [None]
  - Cardiac valve disease [None]
  - Mental status changes [None]
  - Encephalopathy [None]
  - Atelectasis [None]
  - Pericardial effusion [None]
  - Pericarditis [None]
  - Hepatic cirrhosis [None]
  - Vascular occlusion [None]
  - Tachycardia [None]
  - Hypoxia [None]
  - Anuria [None]
  - Continuous haemodiafiltration [None]
  - Bradycardia [None]
  - Cardiac arrest [None]
  - Troponin increased [None]
  - Aspiration [None]
  - Septic shock [None]
